FAERS Safety Report 8611088-6 (Version None)
Quarter: 2012Q3

REPORT INFORMATION
  Report Type: 
  Country: None (occurrence: None)
  Receive Date: 20120808
  Receipt Date: 20120727
  Transmission Date: 20120928
  Serious: Yes (Other)
  Sender: FDA-Public Use
  Company Number: MPS1-1000748

PATIENT
  Age: 28 Year
  Sex: Male

DRUGS (1)
  1. ALDURAZYME [Suspect]
     Indication: MUCOPOLYSACCHARIDOSIS I
     Dosage: UNK, INTRAVENOUS
     Route: 042

REACTIONS (4)
  - DRUG DOSE OMISSION [None]
  - HEPATOMEGALY [None]
  - HEPATIC HAEMORRHAGE [None]
  - LUNG DISORDER [None]
